FAERS Safety Report 9796210 (Version 2)
Quarter: 2014Q1

REPORT INFORMATION
  Report Type: Report from Study
  Country: US (occurrence: US)
  Receive Date: 20140103
  Receipt Date: 20140103
  Transmission Date: 20141002
  Serious: Yes (Hospitalization)
  Sender: FDA-Public Use
  Company Number: US-ROCHE-1034709

PATIENT
  Age: 59 Year
  Sex: Male
  Weight: 84 kg

DRUGS (1)
  1. VISMODEGIB [Suspect]
     Indication: CHONDROSARCOMA
     Route: 048
     Dates: start: 20111018, end: 20120214

REACTIONS (1)
  - Embolism [Unknown]
